FAERS Safety Report 15615571 (Version 2)
Quarter: 2018Q4

REPORT INFORMATION
  Report Type: Spontaneous
  Country: JP (occurrence: JP)
  Receive Date: 20181114
  Receipt Date: 20181213
  Transmission Date: 20190205
  Serious: Yes (Other)
  Sender: FDA-Public Use
  Company Number: JP-TEVA-2018-JP-006148J

PATIENT
  Age: 53 Year
  Sex: Female

DRUGS (3)
  1. TAIPROTON CAPSULE 30MG [Suspect]
     Active Substance: LANSOPRAZOLE
     Indication: GASTROOESOPHAGEAL REFLUX DISEASE
     Dosage: 15 MILLIGRAM DAILY;
     Route: 048
     Dates: start: 201511
  2. OLMESARTAN MEDOXOMIL. [Suspect]
     Active Substance: OLMESARTAN MEDOXOMIL
     Indication: HYPERTENSION
     Dosage: 10 MILLIGRAM DAILY;
     Route: 048
     Dates: start: 201511
  3. EURODIN 2MG. TABLETS [Suspect]
     Active Substance: ESTAZOLAM
     Indication: INSOMNIA
     Dosage: 2 MILLIGRAM DAILY;
     Route: 048

REACTIONS (1)
  - Anaemia [Not Recovered/Not Resolved]

NARRATIVE: CASE EVENT DATE: 20181106
